FAERS Safety Report 10554644 (Version 1)
Quarter: 2014Q4

REPORT INFORMATION
  Report Type: Spontaneous
  Country: US (occurrence: None)
  Receive Date: 20141029
  Receipt Date: 20141029
  Transmission Date: 20150529
  Serious: No
  Sender: FDA-Public Use
  Company Number: None

PATIENT
  Age: 66 Year
  Sex: Female

DRUGS (2)
  1. NAPROXEN. [Suspect]
     Active Substance: NAPROXEN
     Dosage: 1, TWICE DAILY, TAKEN BY MOUTH
     Route: 048
  2. NAPROXEN. [Suspect]
     Active Substance: NAPROXEN
     Indication: ARTHRITIS
     Dosage: 1, TWICE DAILY, TAKEN BY MOUTH
     Route: 048

REACTIONS (4)
  - Arthralgia [None]
  - Constipation [None]
  - Diarrhoea [None]
  - Gastrointestinal pain [None]
